FAERS Safety Report 12958701 (Version 7)
Quarter: 2019Q2

REPORT INFORMATION
  Report Type: Spontaneous
  Country: US (occurrence: US)
  Receive Date: 20161121
  Receipt Date: 20190603
  Transmission Date: 20190711
  Serious: Yes (Death, Hospitalization, Other)
  Sender: FDA-Public Use
  Company Number: US-VELOXIS PHARMACEUTICALS-1059813

PATIENT
  Age: 61 Year
  Sex: Male

DRUGS (3)
  1. WARFARIN [Concomitant]
     Active Substance: WARFARIN
  2. ENVARSUS XR [Suspect]
     Active Substance: TACROLIMUS
     Indication: RENAL TRANSPLANT
     Dosage: 2 MG, QD
     Dates: start: 20151218, end: 20170324
  3. HYDRALAZINE [Concomitant]
     Active Substance: HYDRALAZINE HYDROCHLORIDE

REACTIONS (13)
  - Malaise [Unknown]
  - Fall [Recovered/Resolved]
  - Subdural haematoma [Recovered/Resolved]
  - Pulmonary oedema [Recovered/Resolved]
  - Blood potassium decreased [Unknown]
  - Dehydration [Recovered/Resolved]
  - Dyspnoea [Recovered/Resolved]
  - Tremor [Unknown]
  - Fluid overload [Fatal]
  - Fall [Recovered/Resolved]
  - Asthenia [Recovered/Resolved]
  - Cerebrovascular accident [Unknown]
  - Fluid overload [Recovered/Resolved]

NARRATIVE: CASE EVENT DATE: 2016
